FAERS Safety Report 13773018 (Version 10)
Quarter: 2018Q3

REPORT INFORMATION
  Report Type: Report from Study
  Country: BR (occurrence: BR)
  Receive Date: 20170720
  Receipt Date: 20180905
  Transmission Date: 20181010
  Serious: Yes (Hospitalization, Other)
  Sender: FDA-Public Use
  Company Number: BR-SA-2017SA115923

PATIENT
  Age: 53 Year
  Sex: Female
  Weight: 77 kg

DRUGS (2)
  1. ALEMTUZUMAB [Suspect]
     Active Substance: ALEMTUZUMAB
     Dosage: 3 DF,UNK
     Route: 041
     Dates: start: 20170614, end: 20170616
  2. ALEMTUZUMAB [Suspect]
     Active Substance: ALEMTUZUMAB
     Indication: MULTIPLE SCLEROSIS
     Dosage: 3 DF,UNK
     Route: 041
     Dates: start: 20151204

REACTIONS (31)
  - Hospitalisation [Recovered/Resolved]
  - Pain in jaw [Not Recovered/Not Resolved]
  - Mental disorder [Recovering/Resolving]
  - Pneumonia [Unknown]
  - Poisoning [Not Recovered/Not Resolved]
  - Multiple sclerosis relapse [Recovered/Resolved]
  - Lymphocyte count abnormal [Not Recovered/Not Resolved]
  - Injury [Unknown]
  - Spinal X-ray abnormal [Recovering/Resolving]
  - Chest pain [Not Recovered/Not Resolved]
  - Lip injury [Recovered/Resolved]
  - Limb injury [Recovered/Resolved]
  - Multiple sclerosis relapse [Not Recovered/Not Resolved]
  - Pulmonary haematoma [Unknown]
  - Sinusitis [Recovered/Resolved]
  - Drug ineffective [Unknown]
  - Nosocomial infection [Recovered/Resolved]
  - Bone marrow disorder [Not Recovered/Not Resolved]
  - Pain in extremity [Not Recovered/Not Resolved]
  - Neurogenic bladder [Not Recovered/Not Resolved]
  - Pulmonary pain [Unknown]
  - Central nervous system lesion [Not Recovered/Not Resolved]
  - Ill-defined disorder [Not Recovered/Not Resolved]
  - Diplegia [Not Recovered/Not Resolved]
  - Lung infiltration [Recovered/Resolved]
  - Pain [Not Recovered/Not Resolved]
  - Cough [Unknown]
  - Pyrexia [Not Recovered/Not Resolved]
  - Multiple sclerosis relapse [Recovering/Resolving]
  - Diarrhoea [Unknown]
  - Dizziness [Not Recovered/Not Resolved]

NARRATIVE: CASE EVENT DATE: 2017
